FAERS Safety Report 11583286 (Version 1)
Quarter: 2015Q4

REPORT INFORMATION
  Report Type: Spontaneous
  Country: US (occurrence: US)
  Receive Date: 20151001
  Receipt Date: 20151001
  Transmission Date: 20160304
  Serious: Yes (Other)
  Sender: FDA-Public Use
  Company Number: US-BAYER-2015-428258

PATIENT
  Age: 17 Year
  Sex: Female

DRUGS (1)
  1. MIRENA [Suspect]
     Active Substance: LEVONORGESTREL
     Indication: CONTRACEPTION
     Dosage: 20 MCG/24HR, CONT
     Route: 015
     Dates: start: 20150915

REACTIONS (5)
  - Genital discomfort [None]
  - Abdominal distension [None]
  - Post procedural haemorrhage [Recovered/Resolved]
  - Abdominal pain lower [None]
  - Migraine [None]

NARRATIVE: CASE EVENT DATE: 20150915
